FAERS Safety Report 13992464 (Version 1)
Quarter: 2017Q3

REPORT INFORMATION
  Report Type: Spontaneous
  Country: GB (occurrence: GB)
  Receive Date: 20170920
  Receipt Date: 20170920
  Transmission Date: 20171128
  Serious: Yes (Other)
  Sender: FDA-Public Use
  Company Number: GB-TEVA-806500ACC

PATIENT
  Age: 67 Year
  Sex: Male
  Weight: 92.07 kg

DRUGS (4)
  1. IBUPROFEN. [Concomitant]
     Active Substance: IBUPROFEN
  2. PARACETAMOL [Concomitant]
     Active Substance: ACETAMINOPHEN
  3. TRAMADOL HYDROCHLORIDE. [Suspect]
     Active Substance: TRAMADOL HYDROCHLORIDE
     Indication: SCIATICA
     Dosage: 400 MILLIGRAM DAILY;
     Route: 048
     Dates: start: 20170711, end: 20170812
  4. NAPROXEN. [Concomitant]
     Active Substance: NAPROXEN

REACTIONS (11)
  - Constipation [Recovered/Resolved]
  - Dysuria [Recovered/Resolved]
  - Decreased appetite [Recovering/Resolving]
  - Mood altered [Recovered/Resolved]
  - Withdrawal syndrome [Recovered/Resolved]
  - Nausea [Recovering/Resolving]
  - Micturition urgency [Recovered/Resolved]
  - Urine flow decreased [Recovered/Resolved]
  - Abnormal loss of weight [Recovering/Resolving]
  - Negative thoughts [Recovered/Resolved]
  - Vision blurred [Recovered/Resolved]

NARRATIVE: CASE EVENT DATE: 20170714
